FAERS Safety Report 8247386 (Version 5)
Quarter: 2012Q4

REPORT INFORMATION
  Report Type: 
  Country: US (occurrence: US)
  Receive Date: 20111116
  Receipt Date: 20121001
  Transmission Date: 20130627
  Serious: Yes (Hospitalization)
  Sender: FDA-Public Use
  Company Number: US-ACTELION-A-US2011-47103

PATIENT
  Age: 40 Year
  Sex: Female
  Weight: 120 kg

DRUGS (5)
  1. VELETRI [Suspect]
     Indication: PULMONARY ARTERIAL HYPERTENSION
     Dosage: 7 ng/kg, per min
     Route: 042
  2. VELETRI [Suspect]
     Dosage: 4 ng/kg, per min
     Route: 042
     Dates: start: 20110323
  3. VELETRI [Suspect]
     Dosage: 10 ng/kg, per min
     Route: 042
  4. TRACLEER [Suspect]
     Indication: PULMONARY ARTERIAL HYPERTENSION
     Dosage: UNK
     Route: 048
     Dates: start: 20030305
  5. COUMADIN [Concomitant]

REACTIONS (10)
  - Irritable bowel syndrome [Unknown]
  - Anxiety [Unknown]
  - Nausea [Unknown]
  - Malaise [Unknown]
  - Dizziness [Unknown]
  - Chest pain [Recovering/Resolving]
  - Pulmonary hypertension [Recovering/Resolving]
  - Syncope [Recovering/Resolving]
  - Dyspnoea [Recovering/Resolving]
  - Presyncope [Recovering/Resolving]
